FAERS Safety Report 6161043-3 (Version None)
Quarter: 2009Q2

REPORT INFORMATION
  Report Type: 
  Country: None (occurrence: None)
  Receive Date: 20090420
  Receipt Date: 20090409
  Transmission Date: 20091009
  Serious: Yes (Hospitalization)
  Sender: FDA-Public Use
  Company Number: US-PFIZER INC-2009153694

PATIENT
  Sex: Male
  Weight: 122.45 kg

DRUGS (24)
  1. NAPROXEN [Suspect]
     Indication: OSTEOARTHRITIS
     Dosage: UNK
     Route: 048
     Dates: start: 20071018, end: 20080511
  2. BLINDED *PLACEBO [Suspect]
     Indication: OSTEOARTHRITIS
     Dosage: UNK
     Route: 048
     Dates: start: 20071018, end: 20080511
  3. BLINDED CELECOXIB [Suspect]
     Indication: OSTEOARTHRITIS
     Dosage: UNK
     Route: 048
     Dates: start: 20071018, end: 20080511
  4. IBUPROFEN [Suspect]
     Indication: OSTEOARTHRITIS
     Dosage: UNK
     Route: 048
     Dates: start: 20071018, end: 20080511
  5. NAPROXEN [Suspect]
     Dosage: UNK
     Route: 048
     Dates: start: 20071018, end: 20080511
  6. NAPROXEN [Suspect]
     Indication: RHEUMATOID ARTHRITIS
  7. BLINDED *PLACEBO [Suspect]
     Indication: RHEUMATOID ARTHRITIS
  8. BLINDED CELECOXIB [Suspect]
     Indication: RHEUMATOID ARTHRITIS
  9. IBUPROFEN [Suspect]
     Indication: RHEUMATOID ARTHRITIS
  10. NAPROXEN [Suspect]
  11. NEXIUM [Concomitant]
     Dosage: UNK
     Route: 048
     Dates: start: 20071017
  12. CALCIUM WITH VITAMIN D [Concomitant]
     Dosage: UNK
     Route: 048
     Dates: start: 20030101
  13. MULTI-VITAMINS [Concomitant]
     Dosage: UNK
     Route: 048
     Dates: start: 20030101
  14. ACETYLSALICYLIC ACID [Concomitant]
     Dosage: UNK
     Route: 048
     Dates: start: 20010904
  15. VYTORIN [Concomitant]
     Dosage: UNK
     Route: 048
     Dates: start: 20060619
  16. PLAVIX [Concomitant]
     Dosage: UNK
     Route: 048
     Dates: start: 20040727
  17. TOPROL-XL [Concomitant]
     Dosage: UNK
     Route: 048
     Dates: start: 20020717
  18. LASIX [Concomitant]
     Dosage: UNK
     Route: 048
     Dates: start: 20020717
  19. RHINOCORT [Concomitant]
     Dosage: UNK
     Route: 045
     Dates: start: 20070913
  20. NITROSTAT [Concomitant]
     Dosage: UNK
     Route: 048
     Dates: start: 20031030
  21. IMDUR [Concomitant]
     Dosage: UNK
     Route: 048
     Dates: start: 20060608
  22. ALDACTONE [Concomitant]
     Dosage: UNK
     Route: 048
     Dates: start: 20050101
  23. DARVOCET-N 100 [Concomitant]
     Dosage: UNK
     Route: 048
     Dates: start: 20080506
  24. AMOXIL [Concomitant]
     Dosage: UNK
     Route: 048
     Dates: start: 19850101

REACTIONS (1)
  - AORTIC STENOSIS [None]
